FAERS Safety Report 7426708-1 (Version None)
Quarter: 2011Q2

REPORT INFORMATION
  Report Type: 
  Country: None (occurrence: None)
  Receive Date: 20110420
  Receipt Date: 20110107
  Transmission Date: 20111010
  Serious: No
  Sender: FDA-Public Use
  Company Number: US-TEVA-262358USA

PATIENT
  Sex: Female
  Weight: 61.29 kg

DRUGS (1)
  1. PLAN B ONE-STEP [Suspect]
     Indication: POST COITAL CONTRACEPTION
     Dosage: 1.5 MILLIGRAM;
     Route: 048
     Dates: start: 20110101, end: 20110101

REACTIONS (6)
  - NAUSEA [None]
  - FEELING HOT [None]
  - PELVIC PAIN [None]
  - BLOOD URINE PRESENT [None]
  - VOMITING [None]
  - HEADACHE [None]
